FAERS Safety Report 25899013 (Version 1)
Quarter: 2025Q4

REPORT INFORMATION
  Report Type: Other
  Country: EU (occurrence: EU)
  Receive Date: 20251009
  Receipt Date: 20251009
  Transmission Date: 20260118
  Serious: Yes (Hospitalization)
  Sender: BIOCON
  Company Number: None

PATIENT

DRUGS (1)
  1. TRASTUZUMAB [Suspect]
     Active Substance: TRASTUZUMAB
     Indication: Breast cancer
     Dosage: 410 MILLIGRAM
     Route: 042
     Dates: start: 20250103, end: 20250729

REACTIONS (1)
  - Polyarteritis nodosa [Recovering/Resolving]

NARRATIVE: CASE EVENT DATE: 20250715
